FAERS Safety Report 4316967-6 (Version None)
Quarter: 2004Q1

REPORT INFORMATION
  Report Type: 
  Country: None (occurrence: None)
  Receive Date: 20040312
  Receipt Date: 20040225
  Transmission Date: 20041129
  Serious: Yes (Congenital Anomaly)
  Sender: FDA-Public Use
  Company Number: S04-USA-00732-02

PATIENT
  Age: 0 Day
  Sex: Female

DRUGS (2)
  1. LEXAPRO [Suspect]
     Indication: DEPRESSION
     Dosage: 10 MG QD TRANSPLACENTAL
     Route: 064
     Dates: start: 20030101, end: 20030901
  2. TRAZODONE [Concomitant]
     Route: 064

REACTIONS (4)
  - CONGENITAL ANOMALY [None]
  - CONGENITAL MUSCULOSKELETAL ANOMALY [None]
  - LIMB MALFORMATION [None]
  - MATERNAL DRUGS AFFECTING FOETUS [None]
